FAERS Safety Report 9174112 (Version 2)
Quarter: 2013Q2

REPORT INFORMATION
  Report Type: Spontaneous
  Country: US (occurrence: US)
  Receive Date: 20130320
  Receipt Date: 20130411
  Transmission Date: 20140414
  Serious: No
  Sender: FDA-Public Use
  Company Number: US-PFIZER INC-2013090973

PATIENT
  Age: 30 Year
  Sex: Female
  Weight: 52 kg

DRUGS (2)
  1. LYRICA [Suspect]
     Indication: FIBROMYALGIA
     Dosage: UNK
     Dates: end: 20130307
  2. CALCIUM [Concomitant]
     Dosage: UNK

REACTIONS (6)
  - Hypoaesthesia [Recovered/Resolved]
  - Dysarthria [Unknown]
  - Balance disorder [Unknown]
  - Facial pain [Recovered/Resolved]
  - Contusion [Recovered/Resolved]
  - Bone disorder [Recovered/Resolved]
